FAERS Safety Report 21873452 (Version 1)
Quarter: 2023Q1

REPORT INFORMATION
  Report Type: Spontaneous
  Country: US (occurrence: US)
  Receive Date: 20230117
  Receipt Date: 20230117
  Transmission Date: 20230417
  Serious: Yes (Death, Other)
  Sender: FDA-Public Use
  Company Number: US-AMGEN-USASP2023004279

PATIENT

DRUGS (2)
  1. BEVACIZUMAB [Suspect]
     Active Substance: BEVACIZUMAB
     Indication: Glioblastoma
     Dosage: 10 MILLIGRAM/KG, Q2WK
     Route: 040
  2. ABEMACICLIB [Suspect]
     Active Substance: ABEMACICLIB
     Indication: Glioblastoma
     Dosage: 150 MILLIGRAM, BID
     Route: 048

REACTIONS (4)
  - Death [Fatal]
  - Glioblastoma [Unknown]
  - Toxicity to various agents [Unknown]
  - Inhibitory drug interaction [Unknown]
